FAERS Safety Report 6860049-6 (Version None)
Quarter: 2010Q3

REPORT INFORMATION
  Report Type: 
  Country: None (occurrence: None)
  Receive Date: 20100720
  Receipt Date: 20100707
  Transmission Date: 20110219
  Serious: Yes (Other)
  Sender: FDA-Public Use
  Company Number: GB-PFIZER INC-2010088540

PATIENT
  Sex: Female

DRUGS (2)
  1. NICOTINE [Suspect]
     Dosage: TEN CARTRIDGES PER DAY
     Route: 055
     Dates: start: 20100701
  2. NICOTINE [Suspect]
     Dosage: UNSPECIFIED
     Route: 062
     Dates: end: 20100701

REACTIONS (4)
  - ABDOMINAL PAIN UPPER [None]
  - DIVERTICULITIS [None]
  - DRUG INEFFECTIVE [None]
  - FEELING ABNORMAL [None]
